FAERS Safety Report 18048571 (Version 1)
Quarter: 2020Q3

REPORT INFORMATION
  Report Type: Spontaneous
  Country: BR (occurrence: BR)
  Receive Date: 20200721
  Receipt Date: 20200721
  Transmission Date: 20201103
  Serious: Yes (Other)
  Sender: FDA-Public Use
  Company Number: BR-GLAXOSMITHKLINE-BR2020AMR132229

PATIENT
  Age: 14 Year
  Sex: Male
  Weight: 167 kg

DRUGS (1)
  1. AVAMYS [Suspect]
     Active Substance: FLUTICASONE FUROATE
     Indication: RHINITIS
     Dosage: 2 DF, BID,1 JET IN EACH NOSTRIL TWICE PER DAY,120 DOSES

REACTIONS (4)
  - Product use issue [Unknown]
  - Diabetes mellitus [Unknown]
  - Rhinitis [Unknown]
  - Product prescribing error [Unknown]
